FAERS Safety Report 16892538 (Version 1)
Quarter: 2019Q4

REPORT INFORMATION
  Report Type: Report from Study
  Country: CO (occurrence: CO)
  Receive Date: 20191007
  Receipt Date: 20191007
  Transmission Date: 20200122
  Serious: Yes (Hospitalization, Other)
  Sender: FDA-Public Use
  Company Number: CO-TAKEDA-2019TUS055433

PATIENT
  Age: 48 Year
  Weight: 84 kg

DRUGS (1)
  1. BORTEZOMIB. [Suspect]
     Active Substance: BORTEZOMIB
     Indication: PLASMA CELL MYELOMA
     Dosage: UNK
     Route: 065

REACTIONS (5)
  - Renal failure [Unknown]
  - Infection [Unknown]
  - Myalgia [Unknown]
  - Platelet count increased [Unknown]
  - Dry skin [Unknown]

NARRATIVE: CASE EVENT DATE: 201502
